FAERS Safety Report 22360228 (Version 1)
Quarter: 2023Q2

REPORT INFORMATION
  Report Type: Spontaneous
  Country: PL (occurrence: PL)
  Receive Date: 20230524
  Receipt Date: 20230524
  Transmission Date: 20230721
  Serious: Yes (Other)
  Sender: FDA-Public Use
  Company Number: None

PATIENT
  Age: 65 Year
  Sex: Male
  Weight: 68 kg

DRUGS (3)
  1. OXALIPLATIN [Suspect]
     Active Substance: OXALIPLATIN
     Dosage: 116 MG
     Route: 042
     Dates: start: 20230103, end: 20230103
  2. FLUOROURACIL [Suspect]
     Active Substance: FLUOROURACIL
     Dosage: 547 MG
     Route: 042
     Dates: start: 20230103, end: 20230104
  3. FLUOROURACIL [Suspect]
     Active Substance: FLUOROURACIL
     Dosage: 820 MG
     Route: 042
     Dates: start: 20230103, end: 20230105

REACTIONS (2)
  - Urinary tract infection [Recovered/Resolved with Sequelae]
  - Pulmonary embolism [Recovered/Resolved with Sequelae]

NARRATIVE: CASE EVENT DATE: 20230117
